FAERS Safety Report 8550085-6 (Version None)
Quarter: 2012Q3

REPORT INFORMATION
  Report Type: 
  Country: None (occurrence: None)
  Receive Date: 20120730
  Receipt Date: 20120720
  Transmission Date: 20120928
  Serious: Yes (Hospitalization)
  Sender: FDA-Public Use
  Company Number: JP-VERTEX PHARMACEUTICALS INC.-AE-2012-009273

PATIENT
  Age: 74 Year
  Sex: Male

DRUGS (8)
  1. PEGINTERFERON ALFA-2B [Concomitant]
     Indication: HEPATITIS C
     Route: 058
     Dates: start: 20120307
  2. URSO 250 [Concomitant]
     Route: 048
     Dates: end: 20120424
  3. TELAVIC (TELAPREVIR) [Suspect]
     Indication: HEPATITIS C
     Route: 048
     Dates: start: 20120307, end: 20120514
  4. PEGINTERFERON ALFA-2B [Concomitant]
     Route: 058
  5. PROHEPARUM [Concomitant]
     Route: 048
     Dates: end: 20120424
  6. RIBAVIRIN [Concomitant]
     Indication: HEPATITIS C
     Route: 048
     Dates: start: 20120307, end: 20120322
  7. RIBAVIRIN [Concomitant]
     Route: 048
     Dates: start: 20120323, end: 20120521
  8. RIBAVIRIN [Concomitant]
     Route: 048
     Dates: start: 20120522, end: 20120525

REACTIONS (7)
  - HAEMOGLOBIN DECREASED [None]
  - EMPHYSEMA [None]
  - PYREXIA [None]
  - RENAL IMPAIRMENT [None]
  - ECZEMA ASTEATOTIC [None]
  - DEPRESSION [None]
  - ANXIETY [None]
